FAERS Safety Report 14460434 (Version 1)
Quarter: 2018Q1

REPORT INFORMATION
  Report Type: Spontaneous
  Country: US (occurrence: US)
  Receive Date: 20180130
  Receipt Date: 20180130
  Transmission Date: 20180509
  Serious: Yes (Hospitalization)
  Sender: FDA-Public Use
  Company Number: US-FRESENIUS MEDICAL CARE RENAL THERAPIES GROUP-FMC-1801-000144

PATIENT
  Age: 72 Year
  Sex: Female

DRUGS (26)
  1. PERCOCET [Concomitant]
     Active Substance: ACETAMINOPHEN\OXYCODONE HYDROCHLORIDE
  2. DRISDOL [Concomitant]
     Active Substance: ERGOCALCIFEROL
  3. FLORINEF ACETATE [Concomitant]
     Active Substance: FLUDROCORTISONE ACETATE
  4. COLACE [Concomitant]
     Active Substance: DOCUSATE SODIUM
  5. RENVELA [Concomitant]
     Active Substance: SEVELAMER CARBONATE
  6. ROBAXIN [Concomitant]
     Active Substance: METHOCARBAMOL
  7. ZOFRAN [Concomitant]
     Active Substance: ONDANSETRON HYDROCHLORIDE
  8. ELIQUIS [Concomitant]
     Active Substance: APIXABAN
     Route: 048
  9. ROCALTROL [Concomitant]
     Active Substance: CALCITRIOL
  10. NEURONTIN [Concomitant]
     Active Substance: GABAPENTIN
  11. DELFLEX [Suspect]
     Active Substance: CALCIUM CHLORIDE\DEXTROSE\MAGNESIUM CHLORIDE\SODIUM CHLORIDE\SODIUM LACTATE
     Indication: END STAGE RENAL DISEASE
     Route: 033
  12. KEPPRA [Concomitant]
     Active Substance: LEVETIRACETAM
  13. PEPCID [Concomitant]
     Active Substance: FAMOTIDINE
  14. FLONASE [Concomitant]
     Active Substance: FLUTICASONE PROPIONATE
  15. POTASSIUM CHLORIDE. [Concomitant]
     Active Substance: POTASSIUM CHLORIDE
  16. KEFLEX [Concomitant]
     Active Substance: CEPHALEXIN
  17. MYSOLINE [Concomitant]
     Active Substance: PRIMIDONE
  18. CALCIUM CARBONATE. [Concomitant]
     Active Substance: CALCIUM CARBONATE
  19. PROLIA [Concomitant]
     Active Substance: DENOSUMAB
  20. TRAZODONE [Concomitant]
     Active Substance: TRAZODONE HYDROCHLORIDE
  21. BENADRYL [Concomitant]
     Active Substance: DIPHENHYDRAMINE HYDROCHLORIDE
  22. ZANAFLEX [Concomitant]
     Active Substance: TIZANIDINE HYDROCHLORIDE
  23. XANAX [Concomitant]
     Active Substance: ALPRAZOLAM
  24. GARAMYCIN [Concomitant]
     Active Substance: GENTAMICIN SULFATE
  25. ADVAIR HFA [Concomitant]
     Active Substance: FLUTICASONE PROPIONATE\SALMETEROL XINAFOATE
  26. PREDNISONE. [Concomitant]
     Active Substance: PREDNISONE

REACTIONS (1)
  - Fluid overload [Recovered/Resolved]

NARRATIVE: CASE EVENT DATE: 20180116
